FAERS Safety Report 8986766 (Version 1)
Quarter: 2012Q4

REPORT INFORMATION
  Report Type: 
  Country: GB (occurrence: GB)
  Receive Date: 20121227
  Receipt Date: 20121227
  Transmission Date: 20130627
  Serious: Yes (Disabling, Other)
  Sender: FDA-Public Use
  Company Number: GB-ACCORD-015585

PATIENT
  Age: 41 Year
  Sex: Male

DRUGS (5)
  1. QUETIAPINE FUMARATE [Suspect]
     Indication: BIPOLAR II DISORDER
  2. FLUOXETINE [Suspect]
     Indication: DEPRESSION
  3. CITALOPRAM [Suspect]
     Indication: DEPRESSION
  4. VALPROATE SODIUM [Concomitant]
     Indication: DEPRESSION
  5. LITHIUM [Concomitant]
     Indication: DEPRESSION

REACTIONS (5)
  - Epilepsy [Not Recovered/Not Resolved]
  - Bipolar disorder [Unknown]
  - Suicide attempt [Unknown]
  - Overdose [Unknown]
  - Condition aggravated [Unknown]
